FAERS Safety Report 5441951-9 (Version None)
Quarter: 2007Q3

REPORT INFORMATION
  Report Type: 
  Country: None (occurrence: None)
  Receive Date: 20070904
  Receipt Date: 20070829
  Transmission Date: 20080115
  Serious: Yes (Other)
  Sender: FDA-Public Use
  Company Number: A0677411A

PATIENT
  Age: 58 Year
  Sex: Female

DRUGS (6)
  1. COREG [Suspect]
     Dosage: 25MG TWICE PER DAY
     Route: 048
     Dates: start: 20040101
  2. UNIRETIC [Suspect]
     Indication: DRUG USE FOR UNKNOWN INDICATION
     Dates: start: 20070101
  3. BIDIL [Suspect]
     Indication: DRUG USE FOR UNKNOWN INDICATION
     Dates: start: 20070101
  4. LASIX [Concomitant]
  5. HYDRALAZINE HCL [Concomitant]
  6. ASPIRIN [Concomitant]

REACTIONS (6)
  - ANAPHYLACTIC SHOCK [None]
  - DIZZINESS [None]
  - HEADACHE [None]
  - OEDEMA [None]
  - POSTMENOPAUSAL HAEMORRHAGE [None]
  - SYNCOPE [None]
